FAERS Safety Report 9192045 (Version 2)
Quarter: 2013Q1

REPORT INFORMATION
  Report Type: Spontaneous
  Country: GB (occurrence: None)
  Receive Date: 20130325
  Receipt Date: 20130328
  Transmission Date: 20140127
  Serious: Yes (Other)
  Sender: FDA-Public Use
  Company Number: AUR-APL-2013-02479

PATIENT
  Age: 23 Year
  Sex: Male
  Weight: 82.55 kg

DRUGS (8)
  1. MIRTAZAPINE [Suspect]
     Indication: DEPRESSION
     Route: 048
     Dates: start: 20101010
  2. AMOXICILLIN [Concomitant]
  3. CODEINE PHOSPHATE (COEDINE PHOSPHATE) [Concomitant]
  4. DIAZEPAM (DIAZEPAM) [Concomitant]
  5. FLUCLOXACILLIN (FLUCLOXACILLIN) [Concomitant]
  6. LANSOPRAZOLE (LANSOPRAZOLE) [Concomitant]
  7. METOCLOPRAMIDE (METOCLOPRAMIDE) [Concomitant]
  8. PREGABALIN (PREGABALIN) [Concomitant]

REACTIONS (11)
  - Neuralgia [None]
  - Unevaluable event [None]
  - Hallucination [None]
  - Dystonia [None]
  - Muscle spasms [None]
  - Sleep disorder [None]
  - Parosmia [None]
  - Sleep paralysis [None]
  - Rapid eye movements sleep abnormal [None]
  - Drug effect decreased [None]
  - Drug tolerance [None]
